FAERS Safety Report 4422501-2 (Version None)
Quarter: 2004Q3

REPORT INFORMATION
  Report Type: 
  Country: None (occurrence: None)
  Receive Date: 20040810
  Receipt Date: 20040513
  Transmission Date: 20050211
  Serious: Yes (Other)
  Sender: FDA-Public Use
  Company Number: JP-BRISTOL-MYERS SQUIBB COMPANY-12586640

PATIENT
  Age: 71 Year
  Sex: Male

DRUGS (3)
  1. TAXOL [Suspect]
     Indication: LUNG NEOPLASM MALIGNANT
     Route: 042
  2. PARAPLATIN [Suspect]
     Indication: LUNG NEOPLASM MALIGNANT
     Route: 042
  3. DOCETAXEL [Suspect]
     Indication: LUNG NEOPLASM MALIGNANT

REACTIONS (1)
  - INTERSTITIAL LUNG DISEASE [None]
